FAERS Safety Report 15221756 (Version 2)
Quarter: 2018Q4

REPORT INFORMATION
  Report Type: Spontaneous
  Country: US (occurrence: US)
  Receive Date: 20180731
  Receipt Date: 20181213
  Transmission Date: 20190204
  Serious: No
  Sender: FDA-Public Use
  Company Number: US-BAUSCH-BL-2018-019998

PATIENT
  Age: 65 Year
  Sex: Male
  Weight: 79.45 kg

DRUGS (4)
  1. JUBLIA [Suspect]
     Active Substance: EFINACONAZOLE
     Dosage: REFILL OF JUBLIA MADE IN JAPAN
     Route: 061
     Dates: start: 201807, end: 201807
  2. JUBLIA [Suspect]
     Active Substance: EFINACONAZOLE
     Dosage: THE NEW REFILL
     Route: 061
     Dates: start: 201807
  3. MULTIVITAMINS [Concomitant]
     Active Substance: VITAMINS
     Indication: PRODUCT USED FOR UNKNOWN INDICATION
  4. JUBLIA [Suspect]
     Active Substance: EFINACONAZOLE
     Indication: NAIL DISCOLOURATION
     Route: 061
     Dates: start: 201712, end: 201807

REACTIONS (2)
  - Product quality issue [Recovered/Resolved]
  - Hypersensitivity [Recovered/Resolved]

NARRATIVE: CASE EVENT DATE: 201807
